FAERS Safety Report 19673716 (Version 1)
Quarter: 2021Q3

REPORT INFORMATION
  Report Type: Spontaneous
  Country: US (occurrence: US)
  Receive Date: 20210808
  Receipt Date: 20210808
  Transmission Date: 20211014
  Serious: Yes (Other)
  Sender: FDA-Public Use
  Company Number: None

PATIENT
  Age: 19 Year
  Sex: Female
  Weight: 72 kg

DRUGS (9)
  1. MONTELUKAST SODIUM 10MG TABLET [Suspect]
     Active Substance: MONTELUKAST SODIUM
     Indication: MULTIPLE ALLERGIES
     Dosage: ?          QUANTITY:1 TABLET(S);?
     Route: 048
  2. BIRTH CONTROL MEDICATION [Concomitant]
     Active Substance: UNSPECIFIED INGREDIENT
  3. MOMETASONE NASAL RINSE [Concomitant]
  4. ALBUTERAL INHALER [Concomitant]
  5. VITAMIN B12 [Concomitant]
     Active Substance: CYANOCOBALAMIN
  6. PRENATAL VITAMINS [Concomitant]
     Active Substance: VITAMINS
  7. MONTELUKAST SODIUM 10MG TABLET [Suspect]
     Active Substance: MONTELUKAST SODIUM
     Indication: ASTHMA
     Dosage: ?          QUANTITY:1 TABLET(S);?
     Route: 048
  8. IRON SUPPLEMENTS [Concomitant]
     Active Substance: IRON
  9. BREO ELLIPTA [Concomitant]
     Active Substance: FLUTICASONE FUROATE\VILANTEROL TRIFENATATE

REACTIONS (7)
  - Anxiety [None]
  - Hypoaesthesia [None]
  - Suicidal ideation [None]
  - Fatigue [None]
  - Depression [None]
  - Memory impairment [None]
  - Vitamin B12 deficiency [None]

NARRATIVE: CASE EVENT DATE: 20210301
